FAERS Safety Report 11423641 (Version 3)
Quarter: 2015Q3

REPORT INFORMATION
  Report Type: Spontaneous
  Country: CH (occurrence: IN)
  Receive Date: 20150827
  Receipt Date: 20150915
  Transmission Date: 20151125
  Serious: Yes (Other)
  Sender: FDA-Public Use
  Company Number: CH-LPDUSPRD-20150636

PATIENT
  Age: 24 Year
  Sex: Female

DRUGS (3)
  1. FERINJECT [Suspect]
     Active Substance: FERRIC CARBOXYMALTOSE
     Dosage: 500 MG IN 250 ML NORMAL SALINE
     Route: 041
     Dates: start: 20150706, end: 20150706
  2. CALCIUM [Concomitant]
     Active Substance: CALCIUM
     Dosage: DOSE NOT PROVIDED
     Route: 048
  3. IRON [Concomitant]
     Active Substance: IRON
     Dosage: DOSE NOT PROVIDED
     Route: 048

REACTIONS (4)
  - Foetal death [Unknown]
  - Abdominal pain [Unknown]
  - Exposure during pregnancy [Unknown]
  - Pyrexia [Unknown]

NARRATIVE: CASE EVENT DATE: 20150706
